FAERS Safety Report 21980433 (Version 3)
Quarter: 2023Q1

REPORT INFORMATION
  Report Type: Spontaneous
  Country: FR (occurrence: FR)
  Receive Date: 20230211
  Receipt Date: 20230304
  Transmission Date: 20230417
  Serious: Yes (Other)
  Sender: FDA-Public Use
  Company Number: FR-MYLANLABS-2023M1010936

PATIENT
  Age: 48 Year
  Sex: Male

DRUGS (4)
  1. ATAZANAVIR [Interacting]
     Active Substance: ATAZANAVIR
     Indication: HIV infection
     Dosage: UNK
     Route: 065
  2. RITONAVIR [Suspect]
     Active Substance: RITONAVIR
     Indication: HIV infection
     Dosage: UNK
     Route: 065
  3. TENOFOVIR DISOPROXIL [Interacting]
     Active Substance: TENOFOVIR DISOPROXIL
     Indication: HIV infection
     Dosage: UNK
     Route: 065
  4. VIDEX [Interacting]
     Active Substance: DIDANOSINE
     Indication: HIV infection
     Dosage: 400 MILLIGRAM, ONCE A DAY,400 MILLIGRAM, ONCE A DAY ( RECEIVED FOR A DURATION OF 5 YEARS)
     Route: 065

REACTIONS (4)
  - Retinopathy [Not Recovered/Not Resolved]
  - Retinal toxicity [Not Recovered/Not Resolved]
  - Labelled drug-drug interaction medication error [Not Recovered/Not Resolved]
  - Drug interaction [Not Recovered/Not Resolved]
